FAERS Safety Report 22625282 (Version 1)
Quarter: 2023Q2

REPORT INFORMATION
  Report Type: Spontaneous
  Country: US (occurrence: None)
  Receive Date: 20230620
  Receipt Date: 20230620
  Transmission Date: 20230721
  Serious: Yes (Hospitalization)
  Sender: FDA-Public Use
  Company Number: None

PATIENT
  Age: 74 Year
  Sex: Male
  Weight: 67.1 kg

DRUGS (1)
  1. BREYANZI [Suspect]
     Active Substance: LISOCABTAGENE MARALEUCEL
     Indication: Diffuse large B-cell lymphoma
     Dosage: FREQUENCY : ONCE;?
     Route: 042
     Dates: start: 20230510, end: 20230510

REACTIONS (6)
  - Abdominal discomfort [None]
  - Nausea [None]
  - Musculoskeletal chest pain [None]
  - Confusional state [None]
  - Neurotoxicity [None]
  - Pleural effusion [None]

NARRATIVE: CASE EVENT DATE: 20230521
